FAERS Safety Report 20942920 (Version 2)
Quarter: 2022Q3

REPORT INFORMATION
  Report Type: Spontaneous
  Country: BR (occurrence: BR)
  Receive Date: 20220610
  Receipt Date: 20220830
  Transmission Date: 20221027
  Serious: Yes (Other)
  Sender: FDA-Public Use
  Company Number: BR-BRISTOL-MYERS SQUIBB COMPANY-2022-051575

PATIENT
  Sex: Male

DRUGS (1)
  1. OPDIVO [Suspect]
     Active Substance: NIVOLUMAB
     Indication: Gastrointestinal disorder therapy
     Dosage: DOSE : 480 MG;     FREQ : UNAVAILABLE
     Route: 065
     Dates: start: 202112

REACTIONS (1)
  - Metastases to meninges [Unknown]
